FAERS Safety Report 8008948-6 (Version None)
Quarter: 2011Q4

REPORT INFORMATION
  Report Type: 
  Country: None (occurrence: None)
  Receive Date: 20111227
  Receipt Date: 20111214
  Transmission Date: 20120403
  Serious: Yes (Hospitalization, Other)
  Sender: FDA-Public Use
  Company Number: BR-ROCHE-1022303

PATIENT
  Sex: Male
  Weight: 52 kg

DRUGS (13)
  1. ONDANSETRON [Concomitant]
     Route: 048
     Dates: start: 20110930, end: 20111003
  2. DEXAMETHASONE [Concomitant]
     Indication: VOMITING
     Route: 048
     Dates: start: 20110816, end: 20110819
  3. DEXAMETHASONE [Concomitant]
     Route: 048
     Dates: start: 20110930, end: 20111003
  4. LOPERAMIDE [Concomitant]
     Indication: DIARRHOEA
     Route: 048
     Dates: start: 20110901
  5. CAPECITABINE [Suspect]
     Route: 048
     Dates: start: 20110829, end: 20110913
  6. NISTATINA [Concomitant]
     Route: 048
     Dates: start: 20081022
  7. ONDANSETRON [Concomitant]
     Route: 048
     Dates: start: 20110901, end: 20110904
  8. ONDANSETRON [Concomitant]
     Indication: VOMITING
     Route: 048
     Dates: start: 20110816, end: 20110819
  9. OXALIPLATIN [Suspect]
     Route: 042
     Dates: start: 20110829, end: 20110829
  10. CAPECITABINE [Suspect]
     Indication: COLORECTAL CANCER
     Route: 048
     Dates: start: 20110808, end: 20110822
  11. OXALIPLATIN [Suspect]
     Indication: COLORECTAL CANCER
     Route: 042
     Dates: start: 20110808, end: 20110808
  12. DEXAMETHASONE [Concomitant]
     Route: 048
     Dates: start: 20110901, end: 20110904
  13. OMEPRAZOLE [Concomitant]
     Indication: GASTRITIS
     Route: 048
     Dates: start: 20110811

REACTIONS (6)
  - ASTHENIA [None]
  - MOVEMENT DISORDER [None]
  - DIARRHOEA [None]
  - PERONEAL NERVE PALSY [None]
  - VOMITING [None]
  - DEHYDRATION [None]
